FAERS Safety Report 21408052 (Version 1)
Quarter: 2022Q4

REPORT INFORMATION
  Report Type: Spontaneous
  Country: DE (occurrence: DE)
  Receive Date: 20221004
  Receipt Date: 20221004
  Transmission Date: 20230112
  Serious: Yes (Hospitalization)
  Sender: FDA-Public Use
  Company Number: DE-ADRED-07981-01

PATIENT
  Age: 73 Year
  Sex: Female
  Weight: 58 kg

DRUGS (5)
  1. CISPLATIN [Suspect]
     Active Substance: CISPLATIN
     Indication: Product used for unknown indication
     Dosage: ACCORDING TO SCHEME
  2. CHOLECALCIFEROL [Concomitant]
     Active Substance: CHOLECALCIFEROL
     Indication: Product used for unknown indication
     Dosage: 1 DOSAGE FORMS DAILY; 1000 IU, 1-0-0-0, TABLETS, UNIT DOSE : 1 DF , FREQUENCY : OD
  3. LEVOTHYROXINE SODIUM [Concomitant]
     Active Substance: LEVOTHYROXINE SODIUM
     Indication: Product used for unknown indication
     Dosage: 1 DOSAGE FORMS DAILY; 0.05 MG, 1-0-0-0, UNIT DOSE : 1 DF , FREQUENCY : OD
  4. TIOTROPIUM BROMIDE [Concomitant]
     Active Substance: TIOTROPIUM BROMIDE
     Indication: Product used for unknown indication
     Dosage: 2 DOSAGE FORMS DAILY; 2.5 MCG, 2-0-0-0, SOLUTION FOR INHALATION, UNIT DOSE : 2 DF , FREQUENCY : OD
  5. ETOPOSIDE [Concomitant]
     Active Substance: ETOPOSIDE
     Indication: Product used for unknown indication
     Dosage: ACCORDING TO SCHEME

REACTIONS (2)
  - Hyponatraemia [Unknown]
  - Fatigue [Unknown]
